FAERS Safety Report 8444944-2 (Version None)
Quarter: 2012Q2

REPORT INFORMATION
  Report Type: 
  Country: None (occurrence: None)
  Receive Date: 20120604
  Receipt Date: 20120521
  Transmission Date: 20120825
  Serious: No
  Sender: FDA-Public Use
  Company Number: ADR-UNK-057

PATIENT
  Age: 27 Year
  Sex: Female

DRUGS (6)
  1. LAMIVUDINE (EPIVIR HBV) [Suspect]
     Indication: ACQUIRED IMMUNODEFICIENCY SYNDROME
     Dosage: 1 COURSE
     Dates: start: 20111222
  2. TENOFOVIR DISOPROXIL FUMARATE + EMTRICITABINE(TRUVADA?TVD) [Concomitant]
  3. ZIDOVUDINE (RETROVIR  ZDV)L [Concomitant]
  4. LOPINAVIR + RITONAVIR (KALETRA?,ALUVIA?  LPV/R) [Concomitant]
  5. ATAZANAVIR SULFATE (REYATAZ?,ATV) [Concomitant]
  6. RITONAVIR (NORVIR?,RTV) [Concomitant]

REACTIONS (4)
  - ANAEMIA [None]
  - MATERNAL EXPOSURE DURING PREGNANCY [None]
  - ALANINE AMINOTRANSFERASE INCREASED [None]
  - ASPARTATE AMINOTRANSFERASE INCREASED [None]
